FAERS Safety Report 9891694 (Version 2)
Quarter: 2014Q1

REPORT INFORMATION
  Report Type: Spontaneous
  Country: US (occurrence: US)
  Receive Date: 20140212
  Receipt Date: 20140324
  Transmission Date: 20141002
  Serious: Yes (Other)
  Sender: FDA-Public Use
  Company Number: US-BAYER-2014-018471

PATIENT
  Age: 33 Year
  Sex: Female
  Weight: 89.8 kg

DRUGS (2)
  1. MIRENA [Suspect]
     Indication: CONTRACEPTION
     Dosage: 20 MCG/24HR, CONT
     Route: 015
     Dates: start: 20110304, end: 20130515
  2. COZAAR [Concomitant]
     Indication: HYPERTENSION

REACTIONS (4)
  - Uterine perforation [None]
  - Injury [None]
  - Procedural pain [None]
  - Emotional distress [None]
